FAERS Safety Report 24685228 (Version 1)
Quarter: 2024Q4

REPORT INFORMATION
  Report Type: Report from Study
  Country: US (occurrence: US)
  Receive Date: 20241202
  Receipt Date: 20241202
  Transmission Date: 20250114
  Serious: Yes (Hospitalization, Other)
  Sender: CHEPLAPHARM
  Company Number: US-CHEPLA-2024014975

PATIENT
  Age: 25 Year
  Sex: Male

DRUGS (8)
  1. OLANZAPINE [Suspect]
     Active Substance: OLANZAPINE
     Indication: Agitation
     Route: 042
  2. OLANZAPINE [Suspect]
     Active Substance: OLANZAPINE
     Indication: Agitation
     Dosage: SECOND DOSE
     Route: 042
  3. NALOXONE [Suspect]
     Active Substance: NALOXONE
     Indication: Hypothermia
     Route: 028
  4. NALOXONE [Suspect]
     Active Substance: NALOXONE
     Indication: Mental status changes
     Route: 028
  5. NALOXONE [Suspect]
     Active Substance: NALOXONE
     Indication: Hypoxia
     Route: 028
  6. NALOXONE [Suspect]
     Active Substance: NALOXONE
     Indication: Hypothermia
  7. NALOXONE [Suspect]
     Active Substance: NALOXONE
     Indication: Mental status changes
  8. NALOXONE [Suspect]
     Active Substance: NALOXONE
     Indication: Hypoxia

REACTIONS (4)
  - Lung infiltration [Unknown]
  - Hypoxia [Unknown]
  - Hypotension [Unknown]
  - Off label use [Unknown]
